FAERS Safety Report 5450827-2 (Version None)
Quarter: 2007Q3

REPORT INFORMATION
  Report Type: 
  Country: None (occurrence: None)
  Receive Date: 20070911
  Receipt Date: 20070828
  Transmission Date: 20080115
  Serious: Yes (Other)
  Sender: FDA-Public Use
  Company Number: 017739

PATIENT
  Age: 36 Year
  Sex: Female

DRUGS (3)
  1. AMPHETAMINE AND DEXTROAMPHETAMINE SALTS [Suspect]
     Indication: ATTENTION DEFICIT/HYPERACTIVITY DISORDER
     Dosage: 20 MG, BID, ORAL
     Route: 048
     Dates: start: 20040101
  2. CYMBALTA [Suspect]
     Dosage: 90 MG, QD, ORAL; 60 MG, QOD, ORAL
     Route: 048
     Dates: end: 20070826
  3. CYMBALTA [Suspect]
     Dosage: 90 MG, QD, ORAL; 60 MG, QOD, ORAL
     Route: 048
     Dates: start: 20070827

REACTIONS (6)
  - CONVULSION [None]
  - DRUG INTERACTION [None]
  - MIGRAINE [None]
  - MUSCLE TIGHTNESS [None]
  - PAIN [None]
  - SUICIDAL IDEATION [None]
